FAERS Safety Report 8932284 (Version 2)
Quarter: 2013Q1

REPORT INFORMATION
  Report Type: Report from Study
  Country: US (occurrence: US)
  Receive Date: 20121128
  Receipt Date: 20130222
  Transmission Date: 20140127
  Serious: Yes (Death)
  Sender: FDA-Public Use
  Company Number: US-ROCHE-1157989

PATIENT
  Sex: Female

DRUGS (18)
  1. CAPECITABINE [Suspect]
     Indication: BREAST CANCER METASTATIC
     Route: 065
  2. AMBIEN [Concomitant]
     Route: 048
  3. CARAFATE [Concomitant]
     Route: 048
  4. COLESTID [Concomitant]
     Route: 048
  5. COUMADIN [Concomitant]
     Route: 048
  6. IMODIUM [Concomitant]
     Dosage: EVERY THREE HOURS AS NEEDED
     Route: 048
  7. K-DUR [Concomitant]
     Route: 048
  8. LANTUS [Concomitant]
     Dosage: 4 UNITS DAILY
     Route: 065
  9. LOMOTIL [Concomitant]
     Dosage: 1-2 TABLETS THREE TIMES A DAY AS NEEDED
     Route: 065
  10. LOPRESSOR [Concomitant]
     Route: 048
  11. LORTAB [Concomitant]
     Dosage: 5/500 1-2 TABLETS EVERY SIX HOURS AS NEEDED
     Route: 065
  12. MAGNESIUM OXIDE [Concomitant]
     Route: 048
  13. NEXIUM [Concomitant]
     Route: 048
  14. PRILOSEC [Concomitant]
     Route: 048
  15. PRISTIQ [Concomitant]
     Route: 048
  16. PROCRIT [Concomitant]
     Dosage: PER ONCOLOGY
     Route: 065
  17. SYNTHROID [Concomitant]
     Route: 048
  18. TOPROL XL [Concomitant]
     Route: 048

REACTIONS (1)
  - Breast cancer metastatic [Fatal]
